FAERS Safety Report 13506621 (Version 1)
Quarter: 2017Q2

REPORT INFORMATION
  Report Type: Spontaneous
  Country: US (occurrence: US)
  Receive Date: 20170502
  Receipt Date: 20170502
  Transmission Date: 20170830
  Serious: Yes (Hospitalization, Other)
  Sender: FDA-Public Use
  Company Number: US-ROCHE-1330483

PATIENT
  Sex: Male

DRUGS (1)
  1. AVASTIN [Suspect]
     Active Substance: BEVACIZUMAB
     Indication: ASTROCYTOMA, LOW GRADE
     Route: 065

REACTIONS (4)
  - Skin ulcer [Unknown]
  - Pain in extremity [Unknown]
  - Skin ulcer [Not Recovered/Not Resolved]
  - Vasculitis [Unknown]
